FAERS Safety Report 8771019 (Version 1)
Quarter: 2012Q4

REPORT INFORMATION
  Report Type: 
  Country: US (occurrence: US)
  Receive Date: 20120906
  Receipt Date: 20120906
  Transmission Date: 20130627
  Serious: Yes (Other)
  Sender: FDA-Public Use
  Company Number: US-MPIJNJ-2012-06058

PATIENT

DRUGS (2)
  1. VELCADE [Suspect]
     Indication: MULTIPLE MYELOMA
     Dosage: UNK UNK, Cyclic
     Route: 058
     Dates: start: 20120706
  2. DEXAMETHASONE [Concomitant]
     Indication: MULTIPLE MYELOMA
     Dosage: 8 mg, 1/week
     Route: 065
     Dates: start: 201002

REACTIONS (7)
  - Pain [Unknown]
  - Headache [Unknown]
  - Neuropathy peripheral [Unknown]
  - Hyperhidrosis [Unknown]
  - Vomiting [Unknown]
  - Pyrexia [Unknown]
  - Fatigue [Unknown]
